FAERS Safety Report 7772206 (Version 8)
Quarter: 2014Q2

REPORT INFORMATION
  Report Type: Spontaneous
  Country: US (occurrence: US)
  Receive Date: 20110124
  Receipt Date: 20140404
  Transmission Date: 20141212
  Serious: Yes (Hospitalization, Other)
  Sender: FDA-Public Use
  Company Number: US-ASTRAZENECA-2010SE32303

PATIENT
  Age: 80 Year
  Sex: Female
  Weight: 58.5 kg

DRUGS (26)
  1. NEXIUM [Suspect]
     Indication: GASTROOESOPHAGEAL REFLUX DISEASE
     Route: 048
  2. NEXIUM [Suspect]
     Indication: ULCER
     Route: 048
  3. NEXIUM [Suspect]
     Indication: OESOPHAGEAL CARCINOMA
     Route: 048
  4. NEXIUM [Suspect]
     Indication: GASTROOESOPHAGEAL REFLUX DISEASE
     Route: 048
     Dates: start: 2001, end: 201311
  5. NEXIUM [Suspect]
     Indication: ULCER
     Route: 048
     Dates: start: 2001, end: 201311
  6. NEXIUM [Suspect]
     Indication: OESOPHAGEAL CARCINOMA
     Route: 048
     Dates: start: 2001, end: 201311
  7. TOPROL XL [Suspect]
     Indication: BLOOD PRESSURE ABNORMAL
     Dosage: DAILY
     Route: 048
     Dates: end: 2009
  8. CRESTOR [Suspect]
     Indication: BLOOD CHOLESTEROL ABNORMAL
     Route: 048
     Dates: start: 2004
  9. LISINOPRIL [Suspect]
     Indication: BLOOD PRESSURE ABNORMAL
     Route: 048
  10. PRILOSEC OTC [Suspect]
     Indication: GASTROOESOPHAGEAL REFLUX DISEASE
     Dosage: DAILY
     Route: 048
     Dates: start: 201311
  11. LASIX [Concomitant]
     Indication: FLUID RETENTION
  12. LASIX [Concomitant]
     Indication: FLUID RETENTION
     Dates: start: 2001
  13. PROZAC [Concomitant]
     Indication: ANXIETY
  14. PROZAC [Concomitant]
     Indication: ANXIETY
  15. XANAX [Concomitant]
  16. LIPITOR [Concomitant]
  17. COREG [Concomitant]
     Indication: BLOOD PRESSURE ABNORMAL
  18. IMDUR [Concomitant]
     Indication: CHEST PAIN
  19. POTASSIUM [Concomitant]
     Indication: ADJUVANT THERAPY
  20. THERAGRAM [Concomitant]
     Dosage: 1 AM
  21. ASPIRIN [Concomitant]
  22. NITROQUICK [Concomitant]
  23. COLACE [Concomitant]
  24. MAALOX [Concomitant]
     Dosage: 1 TAB AT AM AND PM
  25. MILK OF MAGNESIA [Concomitant]
  26. VICKS VAPOR RUB [Concomitant]

REACTIONS (24)
  - Cardiac disorder [Unknown]
  - Hiatus hernia [Unknown]
  - Hypertension [Unknown]
  - Cerebrovascular accident [Unknown]
  - Thrombophlebitis [Unknown]
  - Ulcer [Unknown]
  - Cardiac failure [Unknown]
  - Speech disorder [Unknown]
  - Fall [Unknown]
  - Blood pressure diastolic increased [Unknown]
  - Pain [Not Recovered/Not Resolved]
  - Oesophageal disorder [Unknown]
  - Nasopharyngitis [Unknown]
  - Sinusitis [Unknown]
  - Blood cholesterol increased [Unknown]
  - Malaise [Unknown]
  - Body height decreased [Unknown]
  - Laryngitis [Not Recovered/Not Resolved]
  - Aphagia [Not Recovered/Not Resolved]
  - Dysphagia [Not Recovered/Not Resolved]
  - Cough [Not Recovered/Not Resolved]
  - Off label use [Not Recovered/Not Resolved]
  - Drug ineffective [Not Recovered/Not Resolved]
  - Drug dose omission [Unknown]
